FAERS Safety Report 4752289-7 (Version None)
Quarter: 2005Q3

REPORT INFORMATION
  Report Type: 
  Country: None (occurrence: None)
  Receive Date: 20050825
  Receipt Date: 20050816
  Transmission Date: 20060218
  Serious: Yes (Hospitalization)
  Sender: FDA-Public Use
  Company Number: ZA-BRISTOL-MYERS SQUIBB COMPANY-13085196

PATIENT
  Age: 45 Year
  Sex: Male

DRUGS (3)
  1. EFAVIRENZ [Suspect]
     Indication: HIV INFECTION
     Route: 048
     Dates: start: 20030707, end: 20030723
  2. COMBIVIR [Suspect]
     Indication: HIV INFECTION
     Dosage: LAMIVUDINE + ZIDOVUDINE THERAPY 300/150 MG DAILY.
     Route: 048
     Dates: start: 20030707, end: 20030723
  3. SULFAMETHOXAZOLE AND TRIMETHOPRIM [Concomitant]
     Dates: start: 20030707

REACTIONS (5)
  - CEREBELLAR ATAXIA [None]
  - CEREBELLAR SYNDROME [None]
  - MYCOBACTERIUM KANSASII INFECTION [None]
  - PRODUCTIVE COUGH [None]
  - WEIGHT DECREASED [None]
